FAERS Safety Report 7403900-3 (Version None)
Quarter: 2011Q2

REPORT INFORMATION
  Report Type: 
  Country: None (occurrence: None)
  Receive Date: 20110408
  Receipt Date: 20110330
  Transmission Date: 20111010
  Serious: Yes (Other)
  Sender: FDA-Public Use
  Company Number: US-AMGEN-USASP2011017234

PATIENT
  Age: 43 Year
  Sex: Female

DRUGS (3)
  1. ENBREL [Suspect]
     Indication: RHEUMATOID ARTHRITIS
     Dosage: UNK
     Dates: start: 20050101
  2. ENBREL [Suspect]
     Indication: OSTEOARTHRITIS
  3. GOLIMUMAB [Concomitant]

REACTIONS (5)
  - WEIGHT INCREASED [None]
  - INJECTION SITE REACTION [None]
  - CARPAL TUNNEL SYNDROME [None]
  - OSTEOARTHRITIS [None]
  - FATIGUE [None]
